FAERS Safety Report 18588859 (Version 1)
Quarter: 2020Q4

REPORT INFORMATION
  Report Type: Spontaneous
  Country: FR (occurrence: FR)
  Receive Date: 20201208
  Receipt Date: 20201208
  Transmission Date: 20210114
  Serious: Yes (Hospitalization, Other)
  Sender: FDA-Public Use
  Company Number: FR-SA-2020SA349567

PATIENT

DRUGS (3)
  1. RIFADINE [Suspect]
     Active Substance: RIFAMPIN
     Indication: OSTEOMYELITIS
     Dosage: 900 MG, QD
     Route: 048
     Dates: start: 20200929, end: 20201031
  2. SULFAMETHOXAZOLE/TRIMETHOPRIM [Suspect]
     Active Substance: SULFAMETHOXAZOLE\TRIMETHOPRIM
     Indication: OSTEOMYELITIS
     Dosage: 6 DF, QD
     Route: 048
     Dates: start: 20200929, end: 20201031
  3. OFLOCET [Suspect]
     Active Substance: OFLOXACIN
     Indication: OSTEOMYELITIS
     Dosage: 1200 MG, QD
     Route: 048
     Dates: start: 20200929, end: 20201031

REACTIONS (1)
  - Drug reaction with eosinophilia and systemic symptoms [Recovering/Resolving]

NARRATIVE: CASE EVENT DATE: 20201030
